FAERS Safety Report 14171147 (Version 1)
Quarter: 2017Q4

REPORT INFORMATION
  Report Type: Report from Study
  Country: US (occurrence: US)
  Receive Date: 20171108
  Receipt Date: 20171108
  Transmission Date: 20180321
  Serious: No
  Sender: FDA-Public Use
  Company Number: US-INCYTE CORPORATION-2017IN008322

PATIENT

DRUGS (1)
  1. JAKAFI [Suspect]
     Active Substance: RUXOLITINIB
     Route: 048

REACTIONS (5)
  - Aphthous ulcer [Unknown]
  - Glossodynia [Unknown]
  - Skin irritation [Unknown]
  - Swelling face [Unknown]
  - Swollen tongue [Unknown]
